FAERS Safety Report 7128005-0 (Version None)
Quarter: 2010Q4

REPORT INFORMATION
  Report Type: 
  Country: None (occurrence: None)
  Receive Date: 20101130
  Receipt Date: 20101117
  Transmission Date: 20110411
  Serious: Yes (Other)
  Sender: FDA-Public Use
  Company Number: PHHO2010US17492

PATIENT
  Sex: Female
  Weight: 62.6 kg

DRUGS (6)
  1. STI571/CGP57148B T35717+CAPS [Suspect]
     Indication: CHRONIC MYELOID LEUKAEMIA
     Dosage: 400 MG, UNK
     Dates: start: 20000918, end: 20100521
  2. NORVASC [Concomitant]
  3. HYZAAR [Concomitant]
  4. SYNTHROID [Concomitant]
  5. XANAX [Concomitant]
  6. ATENDOL [Concomitant]

REACTIONS (1)
  - AMYOTROPHIC LATERAL SCLEROSIS [None]
